FAERS Safety Report 6362383-5 (Version None)
Quarter: 2009Q3

REPORT INFORMATION
  Report Type: 
  Country: None (occurrence: None)
  Receive Date: 20090918
  Receipt Date: 20090608
  Transmission Date: 20100115
  Serious: No
  Sender: FDA-Public Use
  Company Number: US-ABBOTT-09P-163-0561320-00

PATIENT
  Sex: Female
  Weight: 47.216 kg

DRUGS (6)
  1. HUMIRA [Suspect]
     Indication: CROHN'S DISEASE
     Dates: start: 20081201, end: 20081205
  2. HUMIRA [Suspect]
     Dates: start: 20090118
  3. PENTASA [Concomitant]
     Indication: CROHN'S DISEASE
     Route: 048
  4. WELCHOL [Concomitant]
     Indication: CROHN'S DISEASE
     Route: 048
  5. MULTI-VITAMIN [Concomitant]
     Indication: MEDICAL DIET
     Route: 048
  6. IRON [Concomitant]
     Indication: MEDICAL DIET
     Route: 048

REACTIONS (5)
  - BREAKTHROUGH PAIN [None]
  - CLOSTRIDIAL INFECTION [None]
  - NASOPHARYNGITIS [None]
  - OROPHARYNGEAL PAIN [None]
  - PYREXIA [None]
